FAERS Safety Report 10047123 (Version 1)
Quarter: 2014Q1

REPORT INFORMATION
  Report Type: Spontaneous
  Country: US (occurrence: US)
  Receive Date: 20140331
  Receipt Date: 20140331
  Transmission Date: 20141002
  Serious: No
  Sender: FDA-Public Use
  Company Number: US-MYLANLABS-2013S1010201

PATIENT
  Age: 24 Year
  Sex: Male
  Weight: 66.23 kg

DRUGS (4)
  1. FENTANYL TRANSDERMAL SYSTEM [Suspect]
     Indication: BACK PAIN
     Dosage: CHANGE Q72HR
     Route: 062
     Dates: start: 20130501
  2. XANAX [Concomitant]
     Indication: ANXIETY
     Route: 048
  3. SOMA [Concomitant]
     Indication: MUSCLE SPASMS
     Route: 048
  4. VITAMIN B12 [Concomitant]
     Indication: FATIGUE
     Route: 058

REACTIONS (5)
  - Drug effect decreased [Recovered/Resolved]
  - Pain [Recovered/Resolved]
  - Chest pain [Recovered/Resolved]
  - Headache [Recovered/Resolved]
  - Chills [Recovered/Resolved]
